FAERS Safety Report 16572461 (Version 1)
Quarter: 2019Q3

REPORT INFORMATION
  Report Type: Spontaneous
  Country: ES (occurrence: ES)
  Receive Date: 20190715
  Receipt Date: 20190715
  Transmission Date: 20191004
  Serious: Yes (Hospitalization, Other)
  Sender: FDA-Public Use
  Company Number: ES-MYLANLABS-2019M1064773

PATIENT
  Age: 96 Year
  Sex: Female

DRUGS (3)
  1. LEVOFLOXACIN. [Interacting]
     Active Substance: LEVOFLOXACIN
     Indication: RESPIRATORY TRACT INFECTION
     Dosage: 500MG CADA 24H
     Route: 048
     Dates: start: 20181130, end: 20181207
  2. CLINDAMYCIN. [Suspect]
     Active Substance: CLINDAMYCIN
     Indication: RESPIRATORY TRACT INFECTION
     Dosage: 300MG CADA 8 HORAS
     Route: 048
     Dates: start: 20181130, end: 20181207
  3. MONUROL [Interacting]
     Active Substance: FOSFOMYCIN TROMETHAMINE
     Indication: URINARY TRACT INFECTION
     Dosage: 3G DOSIS ?NICA
     Route: 048
     Dates: start: 20181226, end: 20181226

REACTIONS (2)
  - Clostridium difficile colitis [Recovered/Resolved]
  - Drug interaction [Unknown]

NARRATIVE: CASE EVENT DATE: 20181227
